FAERS Safety Report 10210529 (Version 7)
Quarter: 2015Q1

REPORT INFORMATION
  Report Type: Spontaneous
  Country: US (occurrence: US)
  Receive Date: 20140602
  Receipt Date: 20150217
  Transmission Date: 20150720
  Serious: Yes (Death, Hospitalization, Other)
  Sender: FDA-Public Use
  Company Number: US-009507513-1405USA012354

PATIENT
  Sex: Female

DRUGS (6)
  1. VITAMIN D [Concomitant]
     Active Substance: CHOLECALCIFEROL
     Dosage: 600 MG, BID
     Dates: start: 1997, end: 20120205
  2. FOSAMAX [Suspect]
     Active Substance: ALENDRONATE SODIUM
     Dosage: UNK
     Route: 048
     Dates: start: 2001, end: 2008
  3. OMEGA-3 MARINE TRIGLYCERIDES [Concomitant]
     Active Substance: FISH OIL
     Dosage: UNK, QD
     Dates: start: 1997, end: 20120205
  4. CALCIUM (UNSPECIFIED) [Concomitant]
     Active Substance: CALCIUM
     Dosage: 1000 MG, UNK
     Dates: start: 1997, end: 20120205
  5. FOSAMAX PLUS D [Suspect]
     Active Substance: ALENDRONATE SODIUM\CHOLECALCIFEROL
     Indication: OSTEOPOROSIS
     Dosage: 70MG-2800IU, QW
     Route: 048
     Dates: start: 20070106, end: 20081109
  6. ALENDRONATE SODIUM. [Suspect]
     Active Substance: ALENDRONATE SODIUM
     Indication: OSTEOPOROSIS
     Dosage: 70 MG, QW
     Route: 048
     Dates: start: 20090203, end: 20110322

REACTIONS (34)
  - Femur fracture [Recovering/Resolving]
  - Hypertension [Unknown]
  - Lung infiltration [Unknown]
  - Intramedullary rod insertion [Unknown]
  - Coronary arterial stent insertion [Unknown]
  - Uterine leiomyoma [Unknown]
  - Diverticulum [Unknown]
  - Cerebral haemorrhage [Unknown]
  - Femur fracture [Fatal]
  - Pelvic pain [Unknown]
  - Inflammation [Unknown]
  - Confusional state [Unknown]
  - Ascites [Unknown]
  - Arteriosclerosis [Unknown]
  - Cardio-respiratory arrest [Unknown]
  - Intestinal ischaemia [Unknown]
  - Clostridium difficile colitis [Unknown]
  - Gastrointestinal haemorrhage [Unknown]
  - Hypotension [Unknown]
  - Respiratory failure [Fatal]
  - Femur fracture [Unknown]
  - Fall [Unknown]
  - Arteriosclerosis coronary artery [Unknown]
  - Peripheral vascular disorder [Unknown]
  - Arterial stent insertion [Unknown]
  - Intestinal dilatation [Unknown]
  - Pneumonia [Fatal]
  - Hypothyroidism [Unknown]
  - Multiple fractures [Unknown]
  - Arterial graft [Unknown]
  - Blood cholesterol increased [Unknown]
  - Insomnia [Unknown]
  - Small intestinal obstruction [Unknown]
  - Oedema peripheral [Unknown]

NARRATIVE: CASE EVENT DATE: 20070306
